FAERS Safety Report 22132927 (Version 1)
Quarter: 2023Q1

REPORT INFORMATION
  Report Type: Spontaneous
  Country: ES (occurrence: ES)
  Receive Date: 20230323
  Receipt Date: 20230323
  Transmission Date: 20230418
  Serious: Yes (Other)
  Sender: FDA-Public Use
  Company Number: ES-BEH-2023156587

PATIENT
  Age: 50 Year
  Sex: Female
  Weight: 60 kg

DRUGS (6)
  1. HAEMATE P [Suspect]
     Active Substance: ANTIHEMOPHILIC FACTOR HUMAN
     Indication: Von Willebrand^s disease
     Dosage: UNK, PRN
     Route: 065
     Dates: end: 2019
  2. HAEMATE P [Suspect]
     Active Substance: ANTIHEMOPHILIC FACTOR HUMAN
     Indication: Prophylaxis
     Dosage: 2400/100 INTERNATIONAL UNITS, TIW
     Route: 065
     Dates: start: 20190911
  3. HAEMATE P [Suspect]
     Active Substance: ANTIHEMOPHILIC FACTOR HUMAN
     Dosage: 3600/1500 INTERNATIONAL UNITS, TIW
     Route: 065
     Dates: start: 20220603
  4. HAEMATE P [Suspect]
     Active Substance: ANTIHEMOPHILIC FACTOR HUMAN
     Dosage: UNK, PRN
     Route: 065
     Dates: start: 20191121
  5. TRANEXAMIC ACID [Concomitant]
     Active Substance: TRANEXAMIC ACID
     Dosage: 1500 MILLIGRAM, EVERY 8 HOURS
  6. NORETHINDRONE ACETATE [Concomitant]
     Active Substance: NORETHINDRONE ACETATE

REACTIONS (10)
  - Haemarthrosis [Recovered/Resolved]
  - Haemarthrosis [Recovered/Resolved]
  - Haemarthrosis [Recovered/Resolved]
  - Pain [Unknown]
  - Heavy menstrual bleeding [Unknown]
  - Iron deficiency anaemia [Unknown]
  - Heavy menstrual bleeding [Unknown]
  - Abnormal menstrual clots [Unknown]
  - Uterine leiomyoma [Unknown]
  - Breast cancer [Not Recovered/Not Resolved]

NARRATIVE: CASE EVENT DATE: 20190101
